FAERS Safety Report 9484781 (Version 4)
Quarter: 2013Q3

REPORT INFORMATION
  Report Type: Spontaneous
  Country: US (occurrence: US)
  Receive Date: 20130828
  Receipt Date: 20130927
  Transmission Date: 20140515
  Serious: Yes (Hospitalization)
  Sender: FDA-Public Use
  Company Number: US-GLAXOSMITHKLINE-A1039383A

PATIENT
  Age: 73 Year
  Sex: Female

DRUGS (5)
  1. VENTOLIN HFA [Suspect]
     Indication: CHRONIC OBSTRUCTIVE PULMONARY DISEASE
     Route: 065
  2. PRO-AIR [Concomitant]
  3. XANAX [Concomitant]
  4. POTASSIUM [Concomitant]
  5. BLOOD PRESSURE MEDICATION [Concomitant]

REACTIONS (4)
  - Colon cancer stage III [Unknown]
  - Colon cancer [Unknown]
  - Hypersensitivity [Unknown]
  - Hospitalisation [Unknown]
